FAERS Safety Report 4568078-2 (Version None)
Quarter: 2005Q1

REPORT INFORMATION
  Report Type: 
  Country: None (occurrence: None)
  Receive Date: 20050128
  Receipt Date: 20050115
  Transmission Date: 20050727
  Serious: Yes (Other)
  Sender: FDA-Public Use
  Company Number: 2004068943

PATIENT
  Age: 5 Year
  Sex: Male

DRUGS (2)
  1. ZYRTEC [Suspect]
     Indication: RHINITIS ALLERGIC
     Dates: start: 20040916, end: 20040920
  2. HYDROCORTISONE [Concomitant]

REACTIONS (3)
  - DYSPNOEA [None]
  - ELECTROCARDIOGRAM ABNORMAL [None]
  - TACHYCARDIA [None]
